FAERS Safety Report 4763429-8 (Version None)
Quarter: 2005Q3

REPORT INFORMATION
  Report Type: 
  Country: None (occurrence: None)
  Receive Date: 20050907
  Receipt Date: 20050907
  Transmission Date: 20060218
  Serious: Yes (Other)
  Sender: FDA-Public Use
  Company Number: None

PATIENT
  Age: 30 Year
  Sex: Female
  Weight: 63.5036 kg

DRUGS (2)
  1. GABAPENTIN [Suspect]
     Dosage: 1 CAP    TWICE DAILY    PO
     Route: 048
     Dates: start: 20050811, end: 20050811
  2. GABAPENTIN [Suspect]
     Dosage: 1 CAP    TWICE DAILY    PO
     Route: 048
     Dates: start: 20050813, end: 20050813

REACTIONS (2)
  - HEADACHE [None]
  - PHARMACEUTICAL PRODUCT COMPLAINT [None]
